FAERS Safety Report 6034229-6 (Version None)
Quarter: 2009Q1

REPORT INFORMATION
  Report Type: 
  Country: None (occurrence: None)
  Receive Date: 20090112
  Receipt Date: 20090106
  Transmission Date: 20090719
  Serious: Yes (Death, Hospitalization, Other)
  Sender: FDA-Public Use
  Company Number: US-CELGENEUS-163-21880-08110855

PATIENT
  Sex: Male
  Weight: 59.2 kg

DRUGS (20)
  1. REVLIMID [Suspect]
     Indication: MULTIPLE MYELOMA
     Route: 048
     Dates: start: 20080814, end: 20081031
  2. DEXAMETHASONE [Suspect]
     Indication: MULTIPLE MYELOMA
     Route: 048
  3. DEXAMETHASONE [Suspect]
     Indication: PREMEDICATION
     Route: 051
     Dates: start: 20081101
  4. BORTEZOMIB [Concomitant]
     Route: 051
     Dates: start: 20081125
  5. DOXORUBICIN HCL [Concomitant]
     Route: 051
     Dates: start: 20081125
  6. OXYCONTIN [Concomitant]
     Indication: DRUG USE FOR UNKNOWN INDICATION
     Route: 065
  7. OXYCODONE [Concomitant]
     Indication: PAIN
     Route: 048
  8. FENTANYL [Concomitant]
     Indication: DRUG USE FOR UNKNOWN INDICATION
     Route: 062
     Dates: start: 20081101, end: 20081206
  9. CIPROFLOXACIN [Concomitant]
     Route: 048
     Dates: start: 20081106
  10. LOVENOX [Concomitant]
     Indication: DRUG USE FOR UNKNOWN INDICATION
     Dosage: 50 UNITS
     Route: 058
  11. LIPITOR [Concomitant]
     Indication: DRUG USE FOR UNKNOWN INDICATION
     Route: 065
  12. LIPITOR [Concomitant]
     Route: 065
  13. PROZAC [Concomitant]
     Indication: DRUG USE FOR UNKNOWN INDICATION
     Route: 048
  14. PEPCID AC [Concomitant]
     Indication: DRUG USE FOR UNKNOWN INDICATION
     Route: 048
  15. SONATA [Concomitant]
     Indication: DRUG USE FOR UNKNOWN INDICATION
     Route: 048
  16. ONDANSETRON [Concomitant]
     Indication: PREMEDICATION
     Route: 051
     Dates: start: 20081101
  17. FILGRASTIM [Concomitant]
     Indication: BLOOD COUNT ABNORMAL
     Route: 065
     Dates: start: 20081201
  18. CORTISPORIN [Concomitant]
     Indication: EAR PAIN
     Route: 001
     Dates: start: 20081208, end: 20081209
  19. DILAUDID [Concomitant]
     Indication: PAIN
     Route: 051
     Dates: start: 20081215, end: 20081218
  20. LASIX [Concomitant]
     Route: 065
     Dates: start: 20081216, end: 20081217

REACTIONS (6)
  - MENINGITIS [None]
  - MULTIPLE MYELOMA [None]
  - PANCYTOPENIA [None]
  - PLATELET COUNT DECREASED [None]
  - PNEUMONIA STREPTOCOCCAL [None]
  - SEPSIS [None]
